FAERS Safety Report 23752959 (Version 1)
Quarter: 2024Q2

REPORT INFORMATION
  Report Type: Report from Study
  Country: US (occurrence: US)
  Receive Date: 20240417
  Receipt Date: 20240417
  Transmission Date: 20240715
  Serious: Yes (Hospitalization, Other)
  Sender: FDA-Public Use
  Company Number: US-ABBVIE-5722470

PATIENT
  Sex: Female

DRUGS (2)
  1. VENCLEXTA [Suspect]
     Active Substance: VENETOCLAX
     Indication: Acute myeloid leukaemia recurrent
     Dosage: FORM STRENGTH: 100 MG
     Route: 048
     Dates: start: 2024
  2. VENCLEXTA [Suspect]
     Active Substance: VENETOCLAX
     Indication: Acute myeloid leukaemia recurrent
     Dosage: LAST ADMIN DATE NOVEMBER/DECEMBER 2023?FORM STRENGTH: 100 MG
     Route: 048
     Dates: end: 2023

REACTIONS (3)
  - Acute myeloid leukaemia recurrent [Unknown]
  - Platelet transfusion [Unknown]
  - Transfusion [Unknown]

NARRATIVE: CASE EVENT DATE: 20240101
